FAERS Safety Report 5838025-1 (Version None)
Quarter: 2008Q3

REPORT INFORMATION
  Report Type: 
  Country: None (occurrence: None)
  Receive Date: 20080808
  Receipt Date: 20080229
  Transmission Date: 20090109
  Serious: No
  Sender: FDA-Public Use
  Company Number: A0714646A

PATIENT
  Sex: Female

DRUGS (1)
  1. PAXIL [Suspect]
     Indication: DRUG USE FOR UNKNOWN INDICATION
     Dosage: 2MG PER DAY

REACTIONS (6)
  - ANGER [None]
  - CONFUSIONAL STATE [None]
  - DEPRESSED MOOD [None]
  - FATIGUE [None]
  - FEELING ABNORMAL [None]
  - PARAESTHESIA [None]
